FAERS Safety Report 18540293 (Version 1)
Quarter: 2020Q4

REPORT INFORMATION
  Report Type: Spontaneous
  Country: US (occurrence: US)
  Receive Date: 20201124
  Receipt Date: 20201124
  Transmission Date: 20210114
  Serious: Yes (Life-Threatening)
  Sender: FDA-Public Use
  Company Number: None

PATIENT
  Age: 59 Year
  Sex: Female
  Weight: 76.5 kg

DRUGS (4)
  1. VITAMINS [Concomitant]
     Active Substance: VITAMINS
  2. LIOTHYRONINE [Concomitant]
     Active Substance: LIOTHYRONINE
  3. NOVOLIN R [Suspect]
     Active Substance: INSULIN HUMAN
  4. NOVOLIN N [Suspect]
     Active Substance: INSULIN HUMAN
     Indication: TYPE 1 DIABETES MELLITUS
     Route: 061

REACTIONS (3)
  - Manufacturing product shipping issue [None]
  - Product quality issue [None]
  - Product temperature excursion issue [None]

NARRATIVE: CASE EVENT DATE: 20200201
